FAERS Safety Report 4733958-1 (Version None)
Quarter: 2005Q3

REPORT INFORMATION
  Report Type: 
  Country: None (occurrence: None)
  Receive Date: 20050721
  Receipt Date: 20050502
  Transmission Date: 20060218
  Serious: No
  Sender: FDA-Public Use
  Company Number: 2005SP000488

PATIENT
  Age: 81 Year
  Sex: Male
  Weight: 77.1115 kg

DRUGS (13)
  1. LUNESTA [Suspect]
     Indication: INSOMNIA
     Dosage: SEE IMAGE
     Route: 048
     Dates: start: 20050429
  2. LUNESTA [Suspect]
     Indication: INSOMNIA
     Dosage: SEE IMAGE
     Route: 048
     Dates: start: 20050430
  3. LUNESTA [Suspect]
     Indication: INSOMNIA
     Dosage: SEE IMAGE
     Route: 048
     Dates: start: 20050501
  4. TEMAZEPAM [Concomitant]
  5. SIMVASTATIN [Concomitant]
  6. LORAZEPAM [Concomitant]
  7. VALIUM [Concomitant]
  8. AXID [Concomitant]
  9. GAS X [Concomitant]
  10. ZESTRIL [Concomitant]
  11. PITOPTIC [Concomitant]
  12. ZELATRAM [Concomitant]
  13. ALPHAGAN [Concomitant]

REACTIONS (4)
  - MIDDLE INSOMNIA [None]
  - PRURITUS [None]
  - RESTLESSNESS [None]
  - SLUGGISHNESS [None]
